FAERS Safety Report 7396460-7 (Version None)
Quarter: 2011Q2

REPORT INFORMATION
  Report Type: 
  Country: None (occurrence: None)
  Receive Date: 20110406
  Receipt Date: 20110214
  Transmission Date: 20111010
  Serious: Yes (Hospitalization, Other)
  Sender: FDA-Public Use
  Company Number: US-BAYER-201029971NA

PATIENT
  Sex: Female
  Weight: 81.633 kg

DRUGS (8)
  1. OCELLA [Suspect]
     Indication: CONTRACEPTION
     Route: 048
     Dates: start: 20040301, end: 20100801
  2. YASMIN [Suspect]
     Indication: CONTRACEPTION
     Route: 048
     Dates: start: 20040101, end: 20100801
  3. HERBAL PREPARATION [Concomitant]
  4. PHENYLBUTAZONE [Concomitant]
     Dates: start: 20000101
  5. ADVAIR DISKUS 100/50 [Concomitant]
     Dates: start: 20070101, end: 20080101
  6. YAZ [Suspect]
     Indication: CONTRACEPTION
     Route: 048
     Dates: start: 20040101, end: 20100801
  7. PULMICORT [Concomitant]
     Route: 055
  8. CLEAR ADVANTAGE VITAMINS NOS [Concomitant]
     Dates: start: 20040101

REACTIONS (6)
  - CHOLECYSTITIS CHRONIC [None]
  - CHOLECYSTECTOMY [None]
  - DEPRESSION [None]
  - CHOLELITHIASIS [None]
  - PAIN [None]
  - ANXIETY [None]
